FAERS Safety Report 16235197 (Version 2)
Quarter: 2019Q2

REPORT INFORMATION
  Report Type: Spontaneous
  Country: US (occurrence: US)
  Receive Date: 20190424
  Receipt Date: 20190523
  Transmission Date: 20190711
  Serious: Yes (Hospitalization, Other)
  Sender: FDA-Public Use
  Company Number: US-NOVOPROD-648994

PATIENT
  Age: 57 Year
  Sex: Female
  Weight: 71 kg

DRUGS (4)
  1. NOVOLOG [Suspect]
     Active Substance: INSULIN ASPART
     Dosage: 45 IU, QD
     Route: 058
     Dates: start: 2015
  2. NOVOLOG [Suspect]
     Active Substance: INSULIN ASPART
     Dosage: 45 IU, QD
     Route: 058
     Dates: start: 20190218, end: 20190218
  3. NOVOLOG [Suspect]
     Active Substance: INSULIN ASPART
     Indication: TYPE 1 DIABETES MELLITUS
     Dosage: 45 IU, QD
     Route: 058
     Dates: start: 2015
  4. NOVOLOG [Suspect]
     Active Substance: INSULIN ASPART
     Dosage: 45 IU, QD
     Route: 058
     Dates: start: 2015

REACTIONS (6)
  - Product quality issue [Recovered/Resolved]
  - Product storage error [Unknown]
  - Diabetic ketoacidosis [Recovered/Resolved]
  - Glycosylated haemoglobin increased [Recovered/Resolved]
  - Drug ineffective [Recovered/Resolved]
  - Blood glucose increased [Recovered/Resolved]

NARRATIVE: CASE EVENT DATE: 20190206
